FAERS Safety Report 6853256-X (Version None)
Quarter: 2010Q3

REPORT INFORMATION
  Report Type: 
  Country: None (occurrence: None)
  Receive Date: 20100717
  Receipt Date: 20080108
  Transmission Date: 20110219
  Serious: No
  Sender: FDA-Public Use
  Company Number: US-PFIZER INC-2007102116

PATIENT
  Sex: Female
  Weight: 97.727 kg

DRUGS (2)
  1. CHANTIX [Suspect]
     Indication: SMOKING CESSATION THERAPY
     Dates: start: 20071122
  2. ATORVASTATIN [Concomitant]

REACTIONS (6)
  - BED REST [None]
  - CHILLS [None]
  - DEPRESSION [None]
  - FEELING ABNORMAL [None]
  - MEDICATION ERROR [None]
  - PAIN [None]
